FAERS Safety Report 10550383 (Version 2)
Quarter: 2014Q4

REPORT INFORMATION
  Report Type: Spontaneous
  Country: US (occurrence: US)
  Receive Date: 20141029
  Receipt Date: 20141029
  Transmission Date: 20150529
  Serious: No
  Sender: FDA-Public Use
  Company Number: US-TEVA-397330USA

PATIENT
  Age: 70 Year
  Sex: Female
  Weight: 72.19 kg

DRUGS (8)
  1. THYROID [Concomitant]
     Active Substance: LEVOTHYROXINE\LIOTHYRONINE
     Indication: THYROID DISORDER
  2. LYRICA [Suspect]
     Active Substance: PREGABALIN
     Indication: SCIATIC NERVE INJURY
     Dosage: 600 MILLIGRAM DAILY;
     Dates: start: 200710
  3. CEFDINIR. [Suspect]
     Active Substance: CEFDINIR
     Indication: BRONCHITIS
     Dosage: 300 MILLIGRAM DAILY; EVERY 24 HOURS FOR TEN DAYS
     Route: 048
     Dates: start: 20121207, end: 20121217
  4. ALBUTEROL. [Concomitant]
     Active Substance: ALBUTEROL
  5. DIAZEPAM. [Concomitant]
     Active Substance: DIAZEPAM
     Indication: ANXIETY
  6. PROVIGIL [Suspect]
     Active Substance: MODAFINIL
     Indication: SLEEP DISORDER
     Dosage: 400 MILLIGRAM DAILY;
     Route: 048
  7. LIPITOR [Concomitant]
     Active Substance: ATORVASTATIN CALCIUM
  8. SYNTHROID [Concomitant]
     Active Substance: LEVOTHYROXINE SODIUM
     Indication: THYROID DISORDER
     Dosage: 125 MICROGRAM DAILY;

REACTIONS (21)
  - Cough [Recovering/Resolving]
  - Back pain [Unknown]
  - Stress [Unknown]
  - Feeling of body temperature change [Unknown]
  - Dizziness [Recovered/Resolved]
  - Burning sensation [Unknown]
  - Drug effect increased [Unknown]
  - Nervousness [Not Recovered/Not Resolved]
  - Coordination abnormal [Unknown]
  - Drug hypersensitivity [Unknown]
  - Off label use [Unknown]
  - Product solubility abnormal [Not Recovered/Not Resolved]
  - Fall [Recovered/Resolved]
  - Mood altered [Not Recovered/Not Resolved]
  - Anger [Not Recovered/Not Resolved]
  - Muscle atrophy [Unknown]
  - Insomnia [Unknown]
  - Fatigue [Unknown]
  - Nasopharyngitis [Not Recovered/Not Resolved]
  - Anxiety [Not Recovered/Not Resolved]
  - Dyspnoea [Not Recovered/Not Resolved]

NARRATIVE: CASE EVENT DATE: 20121207
